FAERS Safety Report 7257103-6 (Version None)
Quarter: 2011Q1

REPORT INFORMATION
  Report Type: 
  Country: None (occurrence: None)
  Receive Date: 20110129
  Receipt Date: 20100801
  Transmission Date: 20110831
  Serious: No
  Sender: FDA-Public Use
  Company Number: US-ABBOTT-10P-163-0661119-00

PATIENT
  Age: 24 Year
  Sex: Female

DRUGS (7)
  1. FLONASE [Concomitant]
     Indication: HYPERSENSITIVITY
     Dosage: 2 SPRAYS EACH NOSTRIL AS NEEDED
  2. ASACOL [Concomitant]
     Indication: CROHN'S DISEASE
     Route: 048
  3. FOLIC ACID [Concomitant]
     Indication: PRODUCT USED FOR UNKNOWN INDICATION
  4. MEGA 3 FISH OIL [Concomitant]
     Indication: PRODUCT USED FOR UNKNOWN INDICATION
  5. AMYTRIPTOLYNE [Concomitant]
     Indication: INSOMNIA
     Dosage: AT NIGHT
  6. HUMIRA [Suspect]
     Indication: CROHN'S DISEASE
     Dates: start: 20100522
  7. IMITREX [Concomitant]
     Indication: MIGRAINE
     Route: 048

REACTIONS (2)
  - MIGRAINE [None]
  - INJECTION SITE ERYTHEMA [None]
